FAERS Safety Report 8496108-4 (Version None)
Quarter: 2012Q2

REPORT INFORMATION
  Report Type: 
  Country: None (occurrence: None)
  Receive Date: 20120405
  Receipt Date: 20110520
  Transmission Date: 20120825
  Serious: No
  Sender: FDA-Public Use
  Company Number: PHHY2011US43327

PATIENT

DRUGS (1)
  1. COARTEM [Suspect]

REACTIONS (1)
  - NO ADVERSE EVENT [None]
